FAERS Safety Report 17321920 (Version 2)
Quarter: 2021Q1

REPORT INFORMATION
  Report Type: Other
  Country: US (occurrence: US)
  Receive Date: 20200127
  Receipt Date: 20210125
  Transmission Date: 20210419
  Serious: Yes (Hospitalization)
  Sender: FDA-Public Use
  Company Number: US-ACORDA-ACO_159701_2019

PATIENT
  Age: 70 Year
  Sex: Female
  Weight: 48.98 kg

DRUGS (3)
  1. AUBAGIO [Concomitant]
     Active Substance: TERIFLUNOMIDE
     Indication: PRODUCT USED FOR UNKNOWN INDICATION
     Dosage: UNK
     Route: 065
  2. DALFAMPRIDINE. [Suspect]
     Active Substance: DALFAMPRIDINE
     Indication: PRODUCT USED FOR UNKNOWN INDICATION
     Dosage: UNK
     Route: 065
     Dates: start: 201901
  3. AMPYRA [Suspect]
     Active Substance: DALFAMPRIDINE
     Indication: MULTIPLE SCLEROSIS
     Dosage: 1 DOSAGE FORM, BID
     Route: 048
     Dates: end: 201901

REACTIONS (10)
  - Fall [Unknown]
  - Renal disorder [Unknown]
  - Decubitus ulcer [Unknown]
  - Muscular weakness [Unknown]
  - Amnesia [Unknown]
  - Skin laceration [Unknown]
  - Urinary tract infection [Unknown]
  - Loss of consciousness [Unknown]
  - Fall [Unknown]
  - Infection [Unknown]

NARRATIVE: CASE EVENT DATE: 201902
